FAERS Safety Report 5373685-3 (Version None)
Quarter: 2007Q2

REPORT INFORMATION
  Report Type: 
  Country: None (occurrence: None)
  Receive Date: 20070615
  Receipt Date: 20060814
  Transmission Date: 20071010
  Serious: Yes (Other)
  Sender: FDA-Public Use
  Company Number: 200616789US

PATIENT
  Age: 74 Year
  Sex: Female
  Weight: 73 kg

DRUGS (8)
  1. LANTUS [Suspect]
     Indication: DIABETES MELLITUS NON-INSULIN-DEPENDENT
     Dosage: 15 U HS
     Dates: start: 20051101
  2. LISINOPRIL [Concomitant]
  3. AMLODIPINE (NORVASC 00972401/) [Concomitant]
  4. METOPROLOL SUCCINATE (TOPROL) [Concomitant]
  5. ATORVASTATIN CALCIUM (LIPITOR) [Concomitant]
  6. OXYCODONE HYDROCHLORIDE (OXYCONTIN) [Concomitant]
  7. PREVACID [Concomitant]
  8. NOVOXIN [Concomitant]

REACTIONS (1)
  - HYPERGLYCAEMIA [None]
